FAERS Safety Report 10577263 (Version 2)
Quarter: 2014Q4

REPORT INFORMATION
  Report Type: Spontaneous
  Country: US (occurrence: US)
  Receive Date: 20141111
  Receipt Date: 20141125
  Transmission Date: 20150529
  Serious: Yes (Hospitalization, Other)
  Sender: FDA-Public Use
  Company Number: US-PFIZER INC-2014305095

PATIENT
  Age: 56 Year
  Sex: Female
  Weight: 74 kg

DRUGS (9)
  1. LYRICA [Suspect]
     Active Substance: PREGABALIN
     Indication: FIBROMYALGIA
     Dosage: 150 MG, 2X/DAY
     Dates: start: 2006, end: 201407
  2. OXYCODONE [Concomitant]
     Active Substance: OXYCODONE
     Dosage: 10 MG, PRN UP TO FOUR TIMES A DAY
  3. WELLBUTRIN [Concomitant]
     Active Substance: BUPROPION HYDROCHLORIDE
     Dosage: 150 MG, 2X/DAY
  4. SOMA [Concomitant]
     Active Substance: CARISOPRODOL
     Dosage: UNK; 3X/DAY
  5. DURAGESIC [Concomitant]
     Active Substance: FENTANYL
     Dosage: 75 UG, CHANGED EVERY 72 HOURS
  6. KLONOPIN [Concomitant]
     Active Substance: CLONAZEPAM
     Dosage: 1 MG, 2X/DAY
  7. AMBIEN [Concomitant]
     Active Substance: ZOLPIDEM TARTRATE
     Dosage: 5 MG, 2X/DAY, TAKEN OFF AND ON OVER THE YEARS
  8. BENAZEPRIL [Concomitant]
     Active Substance: BENAZEPRIL\BENAZEPRIL HYDROCHLORIDE
  9. MIRALAX [Concomitant]
     Active Substance: POLYETHYLENE GLYCOL 3350
     Dosage: AS NEEDED

REACTIONS (15)
  - Multiple fractures [Unknown]
  - Confusional state [Unknown]
  - Dehydration [Unknown]
  - Electrocardiogram QT prolonged [Unknown]
  - Irritable bowel syndrome [Unknown]
  - Chronic kidney disease [Unknown]
  - Craniocerebral injury [Unknown]
  - Hypertension [Not Recovered/Not Resolved]
  - Vision blurred [Not Recovered/Not Resolved]
  - Dyspnoea [Not Recovered/Not Resolved]
  - Vomiting [Unknown]
  - Osteomyelitis [Recovered/Resolved]
  - Salmonellosis [Unknown]
  - Logorrhoea [Not Recovered/Not Resolved]
  - Peroneal nerve palsy [Not Recovered/Not Resolved]

NARRATIVE: CASE EVENT DATE: 2011
